FAERS Safety Report 6678864-0 (Version None)
Quarter: 2010Q2

REPORT INFORMATION
  Report Type: 
  Country: None (occurrence: None)
  Receive Date: 20100413
  Receipt Date: 20100408
  Transmission Date: 20101027
  Serious: Yes (Death)
  Sender: FDA-Public Use
  Company Number: US-EISAI INC.-E7273-00146-SPO-US

PATIENT
  Age: 86 Year
  Sex: Male
  Weight: 142 kg

DRUGS (11)
  1. TARGRETIN [Suspect]
     Indication: LYMPHOMA
     Route: 048
     Dates: start: 20100319
  2. WARFARIN [Concomitant]
  3. LOVASTATIN [Concomitant]
  4. TERAZOSIN HCL [Concomitant]
  5. ATENOLOL [Concomitant]
  6. LEVOTHYROXINE SODIUM [Concomitant]
  7. SOTALOL HCL [Concomitant]
  8. LISINOPRIL [Concomitant]
  9. ASPIRIN [Concomitant]
  10. ISOSORBIDE DINITRATE [Concomitant]
  11. MORPHINE [Concomitant]

REACTIONS (1)
  - CARDIAC ARREST [None]
